FAERS Safety Report 5173162-9 (Version None)
Quarter: 2006Q4

REPORT INFORMATION
  Report Type: 
  Country: None (occurrence: None)
  Receive Date: 20061208
  Receipt Date: 20061208
  Transmission Date: 20070319
  Serious: No
  Sender: FDA-Public Use
  Company Number: None

PATIENT

DRUGS (2)
  1. ANTITHYMOCYTE GLOBULIN RABBIT,   GENZYME [Suspect]
     Dates: start: 20061004
  2. ANTITHYMOCYTE GLOBULIN, DILUENT [Suspect]

REACTIONS (1)
  - PHARMACEUTICAL PRODUCT COMPLAINT [None]
